FAERS Safety Report 8606455-0 (Version None)
Quarter: 2012Q3

REPORT INFORMATION
  Report Type: 
  Country: None (occurrence: None)
  Receive Date: 20120820
  Receipt Date: 20120813
  Transmission Date: 20120928
  Serious: Yes (Hospitalization)
  Sender: FDA-Public Use
  Company Number: FR-BAXTER-2012BAX011822

PATIENT
  Age: 84 Year
  Sex: Female
  Weight: 60 kg

DRUGS (8)
  1. FEIBA [Suspect]
     Route: 042
     Dates: start: 20120713, end: 20120714
  2. FLECAINIDE ACETATE [Concomitant]
     Route: 065
  3. EFFEXOR [Concomitant]
     Route: 065
  4. PREDNISOLONE [Concomitant]
     Route: 065
  5. LASIX [Concomitant]
     Route: 065
  6. DIGOXIN [Concomitant]
     Route: 065
  7. PANTOPRAZOLE SODIUM [Concomitant]
     Route: 065
  8. ACETAMINOPHEN [Concomitant]
     Route: 065

REACTIONS (1)
  - HYPERTENSION [None]
